FAERS Safety Report 6144784-3 (Version None)
Quarter: 2009Q2

REPORT INFORMATION
  Report Type: 
  Country: None (occurrence: None)
  Receive Date: 20090406
  Receipt Date: 20090310
  Transmission Date: 20091009
  Serious: Yes (Other)
  Sender: FDA-Public Use
  Company Number: CA-ASTRAZENECA-2009UW05897

PATIENT
  Age: 49 Year
  Sex: Female

DRUGS (3)
  1. SEROQUEL XR [Suspect]
     Route: 048
     Dates: start: 20080731, end: 20090226
  2. SEROQUEL XR [Suspect]
     Route: 048
  3. LAMOTRIGINE [Concomitant]

REACTIONS (2)
  - DISORIENTATION [None]
  - DYSSTASIA [None]
